FAERS Safety Report 9395579 (Version 1)
Quarter: 2013Q3

REPORT INFORMATION
  Report Type: Report from Study
  Country: CN (occurrence: CN)
  Receive Date: 20130711
  Receipt Date: 20130711
  Transmission Date: 20140515
  Serious: Yes (Other)
  Sender: FDA-Public Use
  Company Number: CN-ASTELLAS-2013US007097

PATIENT
  Age: 60 Year
  Sex: Male

DRUGS (3)
  1. ERLOTINIB TABLET [Suspect]
     Indication: OESOPHAGEAL SQUAMOUS CELL CARCINOMA
     Dosage: 150 MG, UID/QD
     Route: 048
  2. CISPLATIN [Suspect]
     Indication: OESOPHAGEAL SQUAMOUS CELL CARCINOMA
     Dosage: 20 MG/M2, DAY 1-3 EVERY 4 WEEKS FOR 2 CYCLES
     Route: 042
  3. PACLITAXEL [Suspect]
     Indication: OESOPHAGEAL SQUAMOUS CELL CARCINOMA
     Dosage: 135 MG/M2, DAY 1 EVERY 4 WEEKS FOR 2 CYCLES
     Route: 042

REACTIONS (2)
  - Off label use [Unknown]
  - Haematotoxicity [Unknown]
